FAERS Safety Report 14616986 (Version 3)
Quarter: 2018Q2

REPORT INFORMATION
  Report Type: Spontaneous
  Country: CN (occurrence: CN)
  Receive Date: 20180309
  Receipt Date: 20180614
  Transmission Date: 20180711
  Serious: Yes (Other)
  Sender: FDA-Public Use
  Company Number: PHHY2018CN034158

PATIENT
  Sex: Female

DRUGS (3)
  1. SEBIVO [Suspect]
     Active Substance: TELBIVUDINE
     Indication: ASCITES
  2. SEBIVO [Suspect]
     Active Substance: TELBIVUDINE
     Indication: HEPATITIS B
     Dosage: 1 DF, QD
     Route: 065
  3. SEBIVO [Suspect]
     Active Substance: TELBIVUDINE
     Indication: HEPATIC CIRRHOSIS

REACTIONS (1)
  - Hepatitis B [Recovered/Resolved]
